APPROVED DRUG PRODUCT: AMINOSOL 5%
Active Ingredient: PROTEIN HYDROLYSATE
Strength: 5%
Dosage Form/Route: INJECTABLE;INJECTION
Application: N005932 | Product #012
Applicant: ABBVIE INC
Approved: Jan 31, 1985 | RLD: No | RS: No | Type: DISCN